FAERS Safety Report 16880650 (Version 1)
Quarter: 2019Q4

REPORT INFORMATION
  Report Type: Spontaneous
  Country: US (occurrence: US)
  Receive Date: 20191003
  Receipt Date: 20191003
  Transmission Date: 20200122
  Serious: Yes (Other)
  Sender: FDA-Public Use
  Company Number: US-EX USA HOLDINGS-EXHL20192393

PATIENT
  Age: 24 Year
  Sex: Female

DRUGS (1)
  1. BENZNIDAZOLE. [Suspect]
     Active Substance: BENZNIDAZOLE
     Indication: AMERICAN TRYPANOSOMIASIS
     Dosage: 1 TABLET
     Route: 048
     Dates: start: 201908, end: 201909

REACTIONS (3)
  - Intentional product use issue [None]
  - Hepatic enzyme increased [Unknown]
  - Hepatotoxicity [Unknown]

NARRATIVE: CASE EVENT DATE: 201908
